FAERS Safety Report 11148547 (Version 1)
Quarter: 2015Q2

REPORT INFORMATION
  Report Type: Spontaneous
  Country: US (occurrence: None)
  Receive Date: 20150527
  Receipt Date: 20150527
  Transmission Date: 20150821
  Serious: Yes (Other)
  Sender: FDA-Public Use
  Company Number: 2015PRN00017

PATIENT
  Age: 28 Year
  Sex: Female
  Weight: 62.6 kg

DRUGS (3)
  1. LEVETIRACETAM 1000 MG (NORTHSTAR) [Suspect]
     Active Substance: LEVETIRACETAM
     Indication: EPILEPSY
     Dosage: 1500 MG,  2X/DAY, ORAL
     Route: 048
     Dates: start: 20150405
  2. LEVETIRACETAM. [Suspect]
     Active Substance: LEVETIRACETAM
     Indication: EPILEPSY
     Dosage: 1500 MG, 2X/DAY, ORAL
     Route: 048
     Dates: start: 201502
  3. TOPIRAMATE. [Suspect]
     Active Substance: TOPIRAMATE
     Dosage: 50 MG,  1X/DAY
     Dates: start: 201402

REACTIONS (2)
  - Hypersensitivity [None]
  - Sinus node dysfunction [None]

NARRATIVE: CASE EVENT DATE: 201403
